FAERS Safety Report 4599783-X (Version None)
Quarter: 2005Q1

REPORT INFORMATION
  Report Type: 
  Country: None (occurrence: None)
  Receive Date: 20050303
  Receipt Date: 20050224
  Transmission Date: 20050727
  Serious: Yes (Other)
  Sender: FDA-Public Use
  Company Number: 2005-02-1641

PATIENT
  Age: 6 Year
  Sex: Male

DRUGS (1)
  1. NASONEX [Suspect]
     Dosage: 1 DOSE NASAL SPRAY
     Dates: start: 20050218, end: 20050218

REACTIONS (1)
  - HALLUCINATION, VISUAL [None]
